FAERS Safety Report 8714998 (Version 2)
Quarter: 2012Q4

REPORT INFORMATION
  Report Type: 
  Country: US (occurrence: US)
  Receive Date: 20120809
  Receipt Date: 20121219
  Transmission Date: 20130627
  Serious: Yes (Other)
  Sender: FDA-Public Use
  Company Number: US-JNJFOC-20111107525

PATIENT
  Age: 69 Year
  Sex: Male
  Weight: 77.63 kg

DRUGS (7)
  1. EVICEL [Suspect]
     Indication: TISSUE SEALING
     Route: 065
  2. EVICEL [Suspect]
     Indication: HAEMOSTASIS
     Route: 065
  3. ALL OTHER THERAPEUTIC PRODUCT [Suspect]
     Indication: FACE LIFT
     Route: 065
  4. ALL OTHER THERAPEUTIC PRODUCT [Suspect]
     Indication: TISSUE SEALING
     Route: 065
  5. ALL OTHER THERAPEUTIC PRODUCT [Suspect]
     Indication: HAEMOSTASIS
     Route: 065
  6. KEFLEX [Concomitant]
     Indication: PROPHYLAXIS
     Route: 065
  7. ANESTHESIA [Concomitant]
     Indication: SEDATION
     Route: 042
     Dates: start: 20100803

REACTIONS (3)
  - Haematoma [Recovering/Resolving]
  - Device malfunction [Recovering/Resolving]
  - Off label use [Unknown]
